FAERS Safety Report 6023398-X (Version None)
Quarter: 2008Q4

REPORT INFORMATION
  Report Type: 
  Country: None (occurrence: None)
  Receive Date: 20081223
  Receipt Date: 20081209
  Transmission Date: 20090506
  Serious: Yes (Life-Threatening, Hospitalization, Other)
  Sender: FDA-Public Use
  Company Number: 1000000618

PATIENT
  Age: 26 Year
  Sex: Female

DRUGS (5)
  1. ESCITALOPRAM [Suspect]
     Dosage: 15 MG (15 MG, 1 IN 1 D), ORAL
     Route: 048
     Dates: start: 20070201, end: 20080801
  2. ESCITALOPRAM [Suspect]
     Dosage: 5 MG (5 MG, 1 IN 1 D), ORAL; 10 MG (10 MG, 1 IN 1 D), ORAL
     Route: 048
     Dates: start: 20080826, end: 20080101
  3. ESCITALOPRAM [Suspect]
     Dosage: 5 MG (5 MG, 1 IN 1 D), ORAL; 10 MG (10 MG, 1 IN 1 D), ORAL
     Route: 048
     Dates: start: 20080819, end: 20080825
  4. ABILIFY [Suspect]
     Indication: MAJOR DEPRESSION
     Dosage: 5 MG (5 MG, 1 IN 1 D), ORAL; 15 MG (15 MG, 1 IN 1 D), ORAL
     Route: 048
     Dates: start: 20070601, end: 20080801
  5. ABILIFY [Suspect]
     Indication: MAJOR DEPRESSION
     Dosage: 5 MG (5 MG, 1 IN 1 D), ORAL; 15 MG (15 MG, 1 IN 1 D), ORAL
     Route: 048
     Dates: start: 20080101

REACTIONS (4)
  - ATRIOVENTRICULAR BLOCK COMPLETE [None]
  - ATRIOVENTRICULAR BLOCK SECOND DEGREE [None]
  - DRUG INTERACTION [None]
  - VENTRICULAR EXTRASYSTOLES [None]
